FAERS Safety Report 10572299 (Version 3)
Quarter: 2014Q4

REPORT INFORMATION
  Report Type: Report from Study
  Country: US (occurrence: US)
  Receive Date: 20141109
  Receipt Date: 20141216
  Transmission Date: 20150529
  Serious: Yes (Hospitalization)
  Sender: FDA-Public Use
  Company Number: US-EISAI MEDICAL RESEARCH-E2007-01802-CLI-US

PATIENT
  Age: 23 Year
  Sex: Male
  Weight: 68 kg

DRUGS (10)
  1. PROZAC [Suspect]
     Active Substance: FLUOXETINE HYDROCHLORIDE
     Indication: ANXIETY
     Dosage: UNKNOWN
     Route: 048
     Dates: start: 2014, end: 2014
  2. SEROQUEL XR [Concomitant]
     Active Substance: QUETIAPINE FUMARATE
  3. CLONIDINE. [Concomitant]
     Active Substance: CLONIDINE
  4. LAMOTRIGINE. [Concomitant]
     Active Substance: LAMOTRIGINE
  5. PERAMPANEL [Suspect]
     Active Substance: PERAMPANEL
     Dosage: OPEN-LABEL EXTENSION
     Route: 048
     Dates: start: 20140708, end: 20140713
  6. PERAMPANEL [Suspect]
     Active Substance: PERAMPANEL
     Dosage: OPEN-LABEL EXTENSION
     Route: 048
     Dates: start: 201401, end: 20140707
  7. ZONISAMIDE. [Concomitant]
     Active Substance: ZONISAMIDE
  8. PERAMPANEL [Suspect]
     Active Substance: PERAMPANEL
     Indication: GENERALISED TONIC-CLONIC SEIZURE
     Dosage: CORE STUDY-DOUBLE BLIND
     Route: 048
     Dates: start: 20130820, end: 20131218
  9. PERAMPANEL [Suspect]
     Active Substance: PERAMPANEL
     Dosage: EXTENSION PHASE-DOUBLE-BLIND
     Route: 048
     Dates: start: 20131219, end: 201401
  10. PERAMPANEL [Suspect]
     Active Substance: PERAMPANEL
     Dosage: OPEN-LABEL EXTENSION
     Route: 048
     Dates: start: 20140714, end: 20140722

REACTIONS (2)
  - Suicidal ideation [Recovering/Resolving]
  - Psychogenic seizure [Not Recovered/Not Resolved]

NARRATIVE: CASE EVENT DATE: 2014
